FAERS Safety Report 5554878-9 (Version None)
Quarter: 2007Q4

REPORT INFORMATION
  Report Type: 
  Country: None (occurrence: None)
  Receive Date: 20071211
  Receipt Date: 20071203
  Transmission Date: 20080405
  Serious: Yes (Other)
  Sender: FDA-Public Use
  Company Number: JPI-P-002579

PATIENT
  Sex: Female

DRUGS (2)
  1. XYREM [Suspect]
     Indication: NARCOLEPSY
     Dosage: 8 GM (4 GM,2 IN 1 D), ORAL
     Route: 048
     Dates: start: 20071026, end: 20071127
  2. AMPHETAMINE (AMFETAMINE SULFATE) [Concomitant]

REACTIONS (1)
  - CONVULSION [None]
